FAERS Safety Report 4277932-0 (Version None)
Quarter: 2004Q1

REPORT INFORMATION
  Report Type: 
  Country: None (occurrence: None)
  Receive Date: 20040122
  Receipt Date: 20040122
  Transmission Date: 20041129
  Serious: Yes (Other)
  Sender: FDA-Public Use
  Company Number: None

PATIENT
  Age: 49 Year
  Sex: Male
  Weight: 90 kg

DRUGS (8)
  1. XIGRIS [Suspect]
     Indication: SEPSIS
     Dosage: 24 MCG/KG/HR IV
     Route: 042
     Dates: start: 20031227, end: 20031228
  2. PREVACID [Concomitant]
  3. SYNTHROID [Concomitant]
  4. ROCEPHIN [Concomitant]
  5. VERSED [Concomitant]
  6. HYDROCORTISONE [Concomitant]
  7. FENTANYL [Concomitant]
  8. PHENYLEPHRINE [Concomitant]

REACTIONS (2)
  - BLOODY DISCHARGE [None]
  - GASTROINTESTINAL DISORDER [None]
